FAERS Safety Report 12783749 (Version 1)
Quarter: 2016Q3

REPORT INFORMATION
  Report Type: Spontaneous
  Country: US (occurrence: US)
  Receive Date: 20160927
  Receipt Date: 20160927
  Transmission Date: 20161109
  Serious: No
  Sender: FDA-Public Use
  Company Number: US-OCTA-GAM29816US

PATIENT

DRUGS (1)
  1. OCTAGAM IMMUNE GLOBULIN (HUMAN) [Suspect]
     Active Substance: HUMAN IMMUNOGLOBULIN G
     Indication: PRODUCT USED FOR UNKNOWN INDICATION
     Route: 042

REACTIONS (7)
  - Lymphadenopathy [Unknown]
  - Pyrexia [Unknown]
  - Cough [Unknown]
  - Feeling abnormal [Unknown]
  - White blood cell count increased [Unknown]
  - Chest pain [Unknown]
  - Oxygen saturation decreased [Unknown]
